FAERS Safety Report 25186195 (Version 1)
Quarter: 2025Q2

REPORT INFORMATION
  Report Type: Spontaneous
  Country: FR (occurrence: FR)
  Receive Date: 20250410
  Receipt Date: 20250410
  Transmission Date: 20250716
  Serious: Yes (Other)
  Sender: BRISTOL MYERS SQUIBB
  Company Number: FR-BRISTOL-MYERS SQUIBB COMPANY-2025-049806

PATIENT
  Age: 79 Year
  Weight: 87 kg

DRUGS (1)
  1. OPDIVO [Suspect]
     Active Substance: NIVOLUMAB
     Indication: Non-small cell lung cancer stage II
     Dosage: FREQUENCY: INTRAVENOUSLY OVER 30 MINUTES EVERY 3 WEEKS FOR 3 CYCLES.
     Route: 042
     Dates: start: 202412, end: 20241230

REACTIONS (1)
  - Systemic lupus erythematosus [Unknown]
